FAERS Safety Report 8844546 (Version 2)
Quarter: 2012Q4

REPORT INFORMATION
  Report Type: 
  Country: US (occurrence: US)
  Receive Date: 20121017
  Receipt Date: 20121025
  Transmission Date: 20130627
  Serious: No
  Sender: FDA-Public Use
  Company Number: US-VERTEX PHARMACEUTICAL INC.-2012-022472

PATIENT
  Age: 57 Year
  Sex: Female
  Weight: 54 kg

DRUGS (4)
  1. INCIVEK [Suspect]
     Indication: HEPATITIS C
     Dosage: 750 mg, tid
     Route: 048
     Dates: start: 20120917
  2. PEGASYS [Suspect]
     Indication: HEPATITIS C
     Dosage: 80 ?g, UNK
     Route: 058
     Dates: start: 20120917
  3. RIBAVIRIN [Suspect]
     Indication: HEPATITIS C
     Dosage: 400 mg, bid
     Route: 048
     Dates: start: 20120917, end: 20121015
  4. RIBAVIRIN [Suspect]
     Dosage: 200 UNK, UNK
     Route: 048
     Dates: start: 20121020

REACTIONS (4)
  - Dizziness [Not Recovered/Not Resolved]
  - Pallor [Not Recovered/Not Resolved]
  - Nasopharyngitis [Not Recovered/Not Resolved]
  - Anaemia [Not Recovered/Not Resolved]
